FAERS Safety Report 5925430-8 (Version None)
Quarter: 2008Q4

REPORT INFORMATION
  Report Type: 
  Country: None (occurrence: None)
  Receive Date: 20081021
  Receipt Date: 20081014
  Transmission Date: 20090506
  Serious: Yes (Hospitalization, Other)
  Sender: FDA-Public Use
  Company Number: US-JNJFOC-20040700375

PATIENT
  Sex: Female
  Weight: 96.16 kg

DRUGS (11)
  1. LEVAQUIN [Suspect]
     Indication: DRUG USE FOR UNKNOWN INDICATION
     Dates: start: 20040412, end: 20040425
  2. NORVASC [Concomitant]
  3. ASPIRIN [Concomitant]
  4. GLUCOSAMINE [Concomitant]
  5. CHONDROITIN SULFATES [Concomitant]
  6. NIACIN [Concomitant]
  7. COQ 10 [Concomitant]
  8. MILK THISSEL [Concomitant]
  9. TYLENOL [Concomitant]
     Dosage: ONCE OR TWICE DAILY
  10. VALTREX [Concomitant]
  11. VALIUM [Concomitant]

REACTIONS (7)
  - ARTHROPATHY [None]
  - LIGAMENT INJURY [None]
  - NEUROPATHY PERIPHERAL [None]
  - RESPIRATORY DISORDER [None]
  - ROTATOR CUFF SYNDROME [None]
  - TENDON DISORDER [None]
  - TENDON RUPTURE [None]
